FAERS Safety Report 25860139 (Version 1)
Quarter: 2025Q3

REPORT INFORMATION
  Report Type: Spontaneous
  Country: US (occurrence: US)
  Receive Date: 20250929
  Receipt Date: 20250929
  Transmission Date: 20251020
  Serious: Yes (Other)
  Sender: ALCON
  Company Number: US-ALCON LABORATORIES-ALC2025US001469

PATIENT
  Sex: Female

DRUGS (1)
  1. BSS PLUS [Suspect]
     Active Substance: CALCIUM CHLORIDE\DEXTROSE\MAGNESIUM CHLORIDE\OXIGLUTATIONE\POTASSIUM CHLORIDE\SODIUM BICARBONATE\SOD
     Indication: Product used for unknown indication
     Route: 065

REACTIONS (4)
  - Corneal decompensation [Recovering/Resolving]
  - Corneal opacity [Recovering/Resolving]
  - Hypersensitivity [Recovering/Resolving]
  - Intraocular pressure increased [Recovering/Resolving]
